FAERS Safety Report 9745589 (Version 1)
Quarter: 2013Q4

REPORT INFORMATION
  Report Type: Spontaneous
  Country: AU (occurrence: None)
  Receive Date: 20131204
  Receipt Date: 20131204
  Transmission Date: 20140711
  Serious: Yes (Death)
  Sender: FDA-Public Use
  Company Number: 2013AP010238

PATIENT
  Age: 81 Year
  Sex: Male

DRUGS (1)
  1. METFORMIN (METFORMIN) [Suspect]
     Dosage: 1000 MG ; UNKNOWN ; QD THERAPY DATES UNKNOWN

REACTIONS (7)
  - Lactic acidosis [None]
  - Cardiac failure congestive [None]
  - Lethargy [None]
  - General physical health deterioration [None]
  - Diarrhoea [None]
  - Blood creatinine increased [None]
  - Glomerular filtration rate decreased [None]
